FAERS Safety Report 4461803-0 (Version None)
Quarter: 2004Q3

REPORT INFORMATION
  Report Type: 
  Country: None (occurrence: None)
  Receive Date: 20040929
  Receipt Date: 20031021
  Transmission Date: 20050211
  Serious: No
  Sender: FDA-Public Use
  Company Number: US-GLAXOSMITHKLINE-A0430964A

PATIENT
  Age: 71 Year
  Sex: Female

DRUGS (3)
  1. SEREVENT [Suspect]
     Indication: PULMONARY RADIATION INJURY
     Dosage: 1PUFF TWICE PER DAY
     Route: 055
  2. FLOVENT [Concomitant]
  3. ALUPENT [Concomitant]

REACTIONS (1)
  - DRUG INEFFECTIVE [None]
